FAERS Safety Report 20693413 (Version 2)
Quarter: 2022Q2

REPORT INFORMATION
  Report Type: Report from Study
  Country: NL (occurrence: NL)
  Receive Date: 20220410
  Receipt Date: 20220414
  Transmission Date: 20220721
  Serious: Yes (Death)
  Sender: FDA-Public Use
  Company Number: NL-BAYER-2022A049306

PATIENT
  Age: 77 Year
  Sex: Female

DRUGS (4)
  1. RIVAROXABAN [Suspect]
     Active Substance: RIVAROXABAN
     Indication: Peripheral arterial occlusive disease
     Route: 048
     Dates: start: 20200819
  2. RIVAROXABAN [Suspect]
     Active Substance: RIVAROXABAN
     Indication: Vascular disorder prophylaxis
  3. ASPIRIN [Suspect]
     Active Substance: ASPIRIN
     Indication: Vascular disorder prophylaxis
     Route: 048
     Dates: start: 20200722
  4. ASPIRIN [Suspect]
     Active Substance: ASPIRIN
     Indication: Peripheral arterial occlusive disease

REACTIONS (1)
  - Death [Fatal]

NARRATIVE: CASE EVENT DATE: 20200830
